FAERS Safety Report 5378318-8 (Version None)
Quarter: 2007Q2

REPORT INFORMATION
  Report Type: 
  Country: None (occurrence: None)
  Receive Date: 20070530
  Receipt Date: 20070216
  Transmission Date: 20071010
  Serious: No
  Sender: FDA-Public Use
  Company Number: 2007PV030260

PATIENT
  Age: 42 Year
  Sex: Female

DRUGS (2)
  1. BYETTA [Suspect]
     Indication: DIABETES MELLITUS NON-INSULIN-DEPENDENT
     Dosage: 10 MCG; BID SC, 5 MCG; BID; SC
     Route: 058
     Dates: start: 20061125, end: 20061201
  2. BYETTA [Suspect]
     Indication: DIABETES MELLITUS NON-INSULIN-DEPENDENT
     Dosage: 10 MCG; BID SC, 5 MCG; BID; SC
     Route: 058
     Dates: start: 20061201

REACTIONS (3)
  - FATIGUE [None]
  - NAUSEA [None]
  - WEIGHT DECREASED [None]
